FAERS Safety Report 19733247 (Version 1)
Quarter: 2021Q3

REPORT INFORMATION
  Report Type: Spontaneous
  Country: NL (occurrence: NL)
  Receive Date: 20210823
  Receipt Date: 20210823
  Transmission Date: 20211014
  Serious: Yes (Life-Threatening, Hospitalization, Other)
  Sender: FDA-Public Use
  Company Number: NL-LUPIN PHARMACEUTICALS INC.-2021-15150

PATIENT
  Age: 18 Year
  Sex: Female
  Weight: 50 kg

DRUGS (2)
  1. CLOMIPRAMINE [Suspect]
     Active Substance: CLOMIPRAMINE
     Indication: PRODUCT USED FOR UNKNOWN INDICATION
     Dosage: 50 DOSAGE FORM IN TOTAL
     Route: 048
  2. QUETIAPINE FUMARATE. [Suspect]
     Active Substance: QUETIAPINE FUMARATE
     Indication: PRODUCT USED FOR UNKNOWN INDICATION
     Dosage: 100 DOSAGE FORM IN TOTAL
     Route: 048

REACTIONS (12)
  - Sinus tachycardia [Recovered/Resolved]
  - Mydriasis [Unknown]
  - Hyporesponsive to stimuli [Recovered/Resolved]
  - Toxicity to various agents [Unknown]
  - Bezoar [Recovered/Resolved]
  - Coma scale abnormal [Unknown]
  - Anxiety [Unknown]
  - Intentional overdose [Unknown]
  - Hypotonia [Unknown]
  - Supraventricular tachycardia [Recovered/Resolved]
  - Poisoning [Recovered/Resolved]
  - Agitation [Unknown]
